FAERS Safety Report 20742900 (Version 2)
Quarter: 2022Q2

REPORT INFORMATION
  Report Type: Report from Study
  Country: US (occurrence: US)
  Receive Date: 20220425
  Receipt Date: 20220531
  Transmission Date: 20220720
  Serious: Yes (Hospitalization, Other)
  Sender: FDA-Public Use
  Company Number: US-CELGENE-USA-20220203078

PATIENT
  Age: 69 Year
  Sex: Male
  Weight: 91.17 kg

DRUGS (19)
  1. POMALYST [Suspect]
     Active Substance: POMALIDOMIDE
     Indication: Plasma cell myeloma
     Dosage: 4 MILLIGRAM
     Route: 048
     Dates: start: 202007
  2. POMALYST [Suspect]
     Active Substance: POMALIDOMIDE
     Dosage: 4 MILLIGRAM
     Route: 048
     Dates: start: 20211211
  3. POMALYST [Suspect]
     Active Substance: POMALIDOMIDE
     Dosage: DAILY ON DAYS 1 A 28 DAY CYCLE
     Route: 048
     Dates: start: 202008
  4. MORPHINE SULFATE [Concomitant]
     Active Substance: MORPHINE SULFATE
  5. HYDROXYZINE [Concomitant]
     Active Substance: HYDROXYZINE HYDROCHLORIDE
  6. VENLAFAXINE [Concomitant]
     Active Substance: VENLAFAXINE HYDROCHLORIDE
  7. ALLOPURINOL [Concomitant]
     Active Substance: ALLOPURINOL
  8. HYDROCHLOROTHIAZIDE [Concomitant]
     Active Substance: HYDROCHLOROTHIAZIDE
  9. TRAZODONE [Concomitant]
     Active Substance: TRAZODONE HYDROCHLORIDE
  10. ASPIRIN [Concomitant]
     Active Substance: ASPIRIN
  11. BENADRYL [Concomitant]
     Active Substance: DIPHENHYDRAMINE HYDROCHLORIDE
  12. FERROUS SULFATE [Concomitant]
     Active Substance: FERROUS SULFATE
  13. ACYCLOVIR [Concomitant]
     Active Substance: ACYCLOVIR
  14. METFORMIN [Concomitant]
     Active Substance: METFORMIN HYDROCHLORIDE
  15. VITAMINS NOS [Concomitant]
     Active Substance: VITAMINS
  16. DEXAMETHASONE [Concomitant]
     Active Substance: DEXAMETHASONE
  17. LISINOPRIL [Concomitant]
     Active Substance: LISINOPRIL
  18. DOXAZOSIN MESYLATE [Concomitant]
     Active Substance: DOXAZOSIN MESYLATE
  19. DARZALEX [Concomitant]
     Active Substance: DARATUMUMAB

REACTIONS (3)
  - Seasonal allergy [Unknown]
  - Pneumonia [Unknown]
  - COVID-19 pneumonia [Unknown]
